FAERS Safety Report 9486741 (Version 1)
Quarter: 2013Q3

REPORT INFORMATION
  Report Type: Spontaneous
  Country: US (occurrence: US)
  Receive Date: 20130829
  Receipt Date: 20130829
  Transmission Date: 20140515
  Serious: No
  Sender: FDA-Public Use
  Company Number: US-BRISTOL-MYERS SQUIBB COMPANY-19006162

PATIENT
  Age: 51 Year
  Sex: Female

DRUGS (1)
  1. KOMBIGLYZE XR [Suspect]
     Indication: DIABETES MELLITUS
     Dosage: 1DF:5/500 MG ?DOSE HAS BEEN INCREASED TO 5/1000 MG
     Dates: start: 201306

REACTIONS (1)
  - Photosensitivity reaction [Unknown]
